FAERS Safety Report 17539068 (Version 2)
Quarter: 2020Q1

REPORT INFORMATION
  Report Type: Spontaneous
  Country: US (occurrence: US)
  Receive Date: 20200313
  Receipt Date: 20200319
  Transmission Date: 20200409
  Serious: Yes (Other)
  Sender: FDA-Public Use
  Company Number: US-BAYER-2020-042418

PATIENT
  Sex: Female

DRUGS (3)
  1. ANAHIST [THONZYLAMINE HYDROCHLORIDE] [Suspect]
     Active Substance: THONZYLAMINE HYDROCHLORIDE
     Dosage: UNK
  2. AFRIN ORIGINAL [Suspect]
     Active Substance: OXYMETAZOLINE HYDROCHLORIDE
     Dosage: UNK
  3. DRISTAN 12 HR [Suspect]
     Active Substance: OXYMETAZOLINE HYDROCHLORIDE
     Dosage: UNK

REACTIONS (2)
  - Drug dependence [None]
  - Hypoacusis [None]
